FAERS Safety Report 8707544 (Version 3)
Quarter: 2013Q2

REPORT INFORMATION
  Report Type: Spontaneous
  Country: US (occurrence: US)
  Receive Date: 20120805
  Receipt Date: 20130408
  Transmission Date: 20140414
  Serious: Yes (Other)
  Sender: FDA-Public Use
  Company Number: US-009507513-1207USA011562

PATIENT
  Age: 27 Year
  Sex: Female
  Weight: 103.4 kg

DRUGS (1)
  1. NUVARING [Suspect]
     Indication: CONTRACEPTION
     Dosage: UNK
     Route: 067
     Dates: start: 2008, end: 20120304

REACTIONS (2)
  - Abortion induced [Recovered/Resolved]
  - Unintended pregnancy [Recovered/Resolved]
